FAERS Safety Report 10681964 (Version 1)
Quarter: 2014Q4

REPORT INFORMATION
  Report Type: Spontaneous
  Country: None (occurrence: None)
  Receive Date: 20141229
  Receipt Date: 20141229
  Transmission Date: 20150529
  Serious: Yes (Other)
  Sender: FDA-Public Use
  Company Number: None

PATIENT
  Age: 49 Year
  Sex: Male
  Weight: 83.92 kg

DRUGS (1)
  1. CREST PRO-HEALTH COMPLETE (FRESH MINT) [Suspect]
     Active Substance: SODIUM FLUORIDE
     Indication: DENTAL DISORDER PROPHYLAXIS
     Route: 048
     Dates: start: 20141224, end: 20141225

REACTIONS (1)
  - Parotid gland enlargement [None]

NARRATIVE: CASE EVENT DATE: 20141225
